FAERS Safety Report 4899521-7 (Version None)
Quarter: 2006Q1

REPORT INFORMATION
  Report Type: 
  Country: None (occurrence: None)
  Receive Date: 20060118
  Receipt Date: 20050802
  Transmission Date: 20060701
  Serious: Yes (Hospitalization)
  Sender: FDA-Public Use
  Company Number: 2005001484

PATIENT
  Age: 49 Year
  Sex: Male
  Weight: 89.3 kg

DRUGS (1)
  1. TARCEVA [Suspect]
     Dosage: ORAL
     Route: 048

REACTIONS (2)
  - DYSPNOEA [None]
  - RASH [None]
